FAERS Safety Report 17632166 (Version 10)
Quarter: 2023Q2

REPORT INFORMATION
  Report Type: Report from Study
  Country: IL (occurrence: IL)
  Receive Date: 20200406
  Receipt Date: 20230424
  Transmission Date: 20230722
  Serious: Yes (Hospitalization, Other)
  Sender: FDA-Public Use
  Company Number: IL-ABBVIE-20K-082-3352685-00

PATIENT
  Age: 71 Year
  Sex: Male
  Weight: 73 kg

DRUGS (105)
  1. VENETOCLAX [Suspect]
     Active Substance: VENETOCLAX
     Indication: Acute myeloid leukaemia
     Dosage: 200 MILLIGRAM
     Route: 048
     Dates: start: 20221030, end: 20221105
  2. VENETOCLAX [Suspect]
     Active Substance: VENETOCLAX
     Indication: Acute myeloid leukaemia
     Dosage: 400 MILLIGRAM
     Route: 048
     Dates: start: 20230122, end: 20230128
  3. VENETOCLAX [Suspect]
     Active Substance: VENETOCLAX
     Indication: Acute myeloid leukaemia
     Dosage: RAMP UP
     Route: 048
     Dates: start: 20210718, end: 20210724
  4. VENETOCLAX [Suspect]
     Active Substance: VENETOCLAX
     Indication: Acute myeloid leukaemia
     Dosage: 400 MG, INTERRUPTION, COUNT RECOVERY (ANC, PLATELETS OR HEMOGLOBIN)
     Route: 048
     Dates: start: 20220710, end: 20220716
  5. VENETOCLAX [Suspect]
     Active Substance: VENETOCLAX
     Indication: Acute myeloid leukaemia
     Dosage: 400 MILLIGRAM
     Route: 048
     Dates: start: 20220410, end: 20220416
  6. VENETOCLAX [Suspect]
     Active Substance: VENETOCLAX
     Indication: Acute myeloid leukaemia
     Dosage: 400 MILLIGRAM
     Route: 048
     Dates: start: 20221211, end: 20221217
  7. VENETOCLAX [Suspect]
     Active Substance: VENETOCLAX
     Indication: Acute myeloid leukaemia
     Dosage: DOSE REDUCTION
     Route: 048
     Dates: start: 20210318, end: 20210318
  8. VENETOCLAX [Suspect]
     Active Substance: VENETOCLAX
     Indication: Acute myeloid leukaemia
     Dosage: 400 MILLIGRAM
     Route: 048
     Dates: start: 20200419, end: 20200510
  9. VENETOCLAX [Suspect]
     Active Substance: VENETOCLAX
     Indication: Acute myeloid leukaemia
     Dosage: 400 MG, INTERRUPTION COUNT RECOVERY (ANC, PLATELETS OR HEMOGLOBIN)
     Route: 048
     Dates: start: 20200524, end: 20200606
  10. VENETOCLAX [Suspect]
     Active Substance: VENETOCLAX
     Indication: Acute myeloid leukaemia
     Dosage: 400 MG, INTERRUPTION COUNT RECOVERY (ANC, PLATELETS OR HEMOGLOBIN)
     Route: 048
     Dates: start: 20200719, end: 20200801
  11. VENETOCLAX [Suspect]
     Active Substance: VENETOCLAX
     Indication: Acute myeloid leukaemia
     Dosage: 400 MG, INTERRUPTION COUNT RECOVERY (ANC, PLATELETS OR HEMOGLOBIN)
     Route: 048
     Dates: start: 20201011, end: 20201017
  12. VENETOCLAX [Suspect]
     Active Substance: VENETOCLAX
     Indication: Acute myeloid leukaemia
     Dosage: 400 MG, INTERRUPTION COUNT RECOVERY (ANC, PLATELETS OR HEMOGLOBIN)
     Route: 048
     Dates: start: 20210124, end: 20210130
  13. VENETOCLAX [Suspect]
     Active Substance: VENETOCLAX
     Indication: Acute myeloid leukaemia
     Dosage: 400 MG, INTERRUPTION COUNT RECOVERY (ANC, PLATELETS OR HEMOGLOBIN)
     Route: 048
     Dates: start: 20210307, end: 20210313
  14. VENETOCLAX [Suspect]
     Active Substance: VENETOCLAX
     Indication: Acute myeloid leukaemia
     Dosage: 400 MG, INTERRUPTION COUNT RECOVERY (ANC, PLATELETS OR HEMOGLOBIN)
     Route: 048
     Dates: start: 20210418, end: 20210424
  15. VENETOCLAX [Suspect]
     Active Substance: VENETOCLAX
     Indication: Acute myeloid leukaemia
     Dosage: 400 MG, INTERRUPTION COUNT RECOVERY (ANC, PLATELETS OR HEMOGLOBIN)
     Route: 048
     Dates: start: 20210530, end: 20210605
  16. VENETOCLAX [Suspect]
     Active Substance: VENETOCLAX
     Indication: Acute myeloid leukaemia
     Dosage: 400 MILLIGRAM
     Route: 048
     Dates: start: 20200317, end: 20200317
  17. VENETOCLAX [Suspect]
     Active Substance: VENETOCLAX
     Indication: Acute myeloid leukaemia
     Dosage: 400 MG, INTERRUPTION COUNT RECOVERY (ANC, PLATELETS OR HEMOGLOBIN)
     Route: 048
     Dates: start: 20230305, end: 20230311
  18. VENETOCLAX [Suspect]
     Active Substance: VENETOCLAX
     Indication: Acute myeloid leukaemia
     Dosage: 400 MG, INTERRUPTION COUNT RECOVERY (ANC, PLATELETS OR HEMOGLOBIN)
     Route: 048
     Dates: start: 20210829, end: 20210904
  19. VENETOCLAX [Suspect]
     Active Substance: VENETOCLAX
     Indication: Acute myeloid leukaemia
     Dosage: 400 MG, INTERRUPTION COUNT RECOVERY (ANC, PLATELETS OR HEMOGLOBIN)
     Route: 048
     Dates: start: 20211017, end: 20211023
  20. VENETOCLAX [Suspect]
     Active Substance: VENETOCLAX
     Indication: Acute myeloid leukaemia
     Dosage: 400 MG, INTERRUPTION COUNT RECOVERY (ANC, PLATELETS OR HEMOGLOBIN)
     Route: 048
     Dates: start: 20211205, end: 20211211
  21. VENETOCLAX [Suspect]
     Active Substance: VENETOCLAX
     Indication: Acute myeloid leukaemia
     Dosage: 400 MG, INTERRUPTION COUNT RECOVERY (ANC, PLATELETS OR HEMOGLOBIN)
     Route: 048
     Dates: start: 20220116, end: 20220122
  22. VENETOCLAX [Suspect]
     Active Substance: VENETOCLAX
     Indication: Acute myeloid leukaemia
     Dosage: 400 MG, INTERRUPTION COUNT RECOVERY (ANC, PLATELETS OR HEMOGLOBIN)
     Route: 048
     Dates: start: 20220227, end: 20220305
  23. VENETOCLAX [Suspect]
     Active Substance: VENETOCLAX
     Indication: Acute myeloid leukaemia
     Dosage: 400 MILLIGRAM
     Route: 048
     Dates: start: 20201213, end: 20201219
  24. VENETOCLAX [Suspect]
     Active Substance: VENETOCLAX
     Indication: Acute myeloid leukaemia
     Dosage: 400 MILLIGRAM
     Route: 048
     Dates: start: 20220918, end: 20220924
  25. VENETOCLAX [Suspect]
     Active Substance: VENETOCLAX
     Indication: Acute myeloid leukaemia
     Dosage: 400 MILLIGRAM
     Route: 048
     Dates: start: 20220522, end: 20220528
  26. VENETOCLAX [Suspect]
     Active Substance: VENETOCLAX
     Indication: Acute myeloid leukaemia
     Dosage: 400 MILLIGRAM
     Route: 048
     Dates: start: 20220703, end: 20220709
  27. VENETOCLAX [Suspect]
     Active Substance: VENETOCLAX
     Indication: Acute myeloid leukaemia
     Dosage: RAMP UP
     Route: 048
     Dates: start: 20200315, end: 20200315
  28. VENETOCLAX [Suspect]
     Active Substance: VENETOCLAX
     Indication: Acute myeloid leukaemia
     Dosage: 400 MILLIGRAM
     Route: 048
     Dates: start: 20220814, end: 20220820
  29. AZACITIDINE [Suspect]
     Active Substance: AZACITIDINE
     Indication: Acute myeloid leukaemia
     Dosage: 70 MILLIGRAM
     Route: 058
     Dates: start: 20220918, end: 20220922
  30. AZACITIDINE [Suspect]
     Active Substance: AZACITIDINE
     Indication: Acute myeloid leukaemia
     Dosage: 70 MILLIGRAM
     Route: 058
     Dates: start: 20220814, end: 20220818
  31. AZACITIDINE [Suspect]
     Active Substance: AZACITIDINE
     Indication: Acute myeloid leukaemia
     Dosage: 70 MILLIGRAM
     Route: 058
     Dates: start: 20220522, end: 20220528
  32. AZACITIDINE [Suspect]
     Active Substance: AZACITIDINE
     Indication: Acute myeloid leukaemia
     Dosage: CYCLE 1
     Route: 058
     Dates: start: 20221030, end: 20221103
  33. AZACITIDINE [Suspect]
     Active Substance: AZACITIDINE
     Indication: Acute myeloid leukaemia
     Dosage: 70 MILLIGRAM
     Route: 058
     Dates: start: 20220410, end: 20220414
  34. AZACITIDINE [Suspect]
     Active Substance: AZACITIDINE
     Indication: Acute myeloid leukaemia
     Dosage: 139 MILLIGRAM
     Route: 058
     Dates: start: 20200419, end: 20200423
  35. AZACITIDINE [Suspect]
     Active Substance: AZACITIDINE
     Indication: Acute myeloid leukaemia
     Dosage: 70 MILLIGRAM
     Route: 058
     Dates: start: 20220710, end: 20220714
  36. AZACITIDINE [Suspect]
     Active Substance: AZACITIDINE
     Indication: Acute myeloid leukaemia
     Dosage: CYCLE 3-NO DOSE MODIFICATION/INTERRUPTION
     Route: 058
     Dates: start: 20221211, end: 20221215
  37. AZACITIDINE [Suspect]
     Active Substance: AZACITIDINE
     Indication: Acute myeloid leukaemia
     Dosage: CYCLE 4
     Route: 058
     Dates: start: 20200719, end: 20200723
  38. AZACITIDINE [Suspect]
     Active Substance: AZACITIDINE
     Indication: Acute myeloid leukaemia
     Dosage: CYCLE 5
     Route: 058
     Dates: start: 20201011, end: 20201015
  39. AZACITIDINE [Suspect]
     Active Substance: AZACITIDINE
     Indication: Acute myeloid leukaemia
     Dosage: CYCLE 6
     Route: 058
     Dates: start: 20201213, end: 20201217
  40. AZACITIDINE [Suspect]
     Active Substance: AZACITIDINE
     Indication: Acute myeloid leukaemia
     Dosage: CYCLE 7
     Route: 058
     Dates: start: 20210124, end: 20210128
  41. AZACITIDINE [Suspect]
     Active Substance: AZACITIDINE
     Indication: Acute myeloid leukaemia
     Dosage: CYCLE 8
     Route: 058
     Dates: start: 20210307, end: 20210311
  42. AZACITIDINE [Suspect]
     Active Substance: AZACITIDINE
     Indication: Acute myeloid leukaemia
     Dosage: CYCLE 9
     Route: 058
     Dates: start: 20210418, end: 20210422
  43. AZACITIDINE [Suspect]
     Active Substance: AZACITIDINE
     Indication: Acute myeloid leukaemia
     Dosage: CYCLE 10
     Route: 058
     Dates: start: 20210530, end: 20210603
  44. AZACITIDINE [Suspect]
     Active Substance: AZACITIDINE
     Indication: Acute myeloid leukaemia
     Dosage: CYCLE 11
     Route: 058
     Dates: start: 20210718, end: 20210722
  45. AZACITIDINE [Suspect]
     Active Substance: AZACITIDINE
     Indication: Acute myeloid leukaemia
     Dosage: CYCLE 12
     Route: 058
     Dates: start: 20210829, end: 20210902
  46. AZACITIDINE [Suspect]
     Active Substance: AZACITIDINE
     Indication: Acute myeloid leukaemia
     Dosage: CYCLE 13
     Route: 058
     Dates: start: 20211017, end: 20211021
  47. AZACITIDINE [Suspect]
     Active Substance: AZACITIDINE
     Indication: Acute myeloid leukaemia
     Dosage: CYCLE 14
     Route: 058
     Dates: start: 20211205, end: 20211209
  48. AZACITIDINE [Suspect]
     Active Substance: AZACITIDINE
     Indication: Acute myeloid leukaemia
     Dosage: CYCLE 15 70 MG
     Route: 058
     Dates: start: 20220116, end: 20220120
  49. AZACITIDINE [Suspect]
     Active Substance: AZACITIDINE
     Indication: Acute myeloid leukaemia
     Dosage: CYCLE 16 ?70 MILLIGRAM
     Route: 058
     Dates: start: 20220227, end: 20220303
  50. AZACITIDINE [Suspect]
     Active Substance: AZACITIDINE
     Indication: Acute myeloid leukaemia
     Dosage: 70 MILLIGRAM
     Route: 058
     Dates: start: 20230122, end: 20230126
  51. AZACITIDINE [Suspect]
     Active Substance: AZACITIDINE
     Indication: Acute myeloid leukaemia
     Dosage: 70 MILLIGRAM
     Route: 058
     Dates: start: 20230305, end: 20230309
  52. AZACITIDINE [Suspect]
     Active Substance: AZACITIDINE
     Indication: Acute myeloid leukaemia
     Dosage: 139 MILLIGRAM
     Route: 058
     Dates: start: 20200426, end: 20200427
  53. AZACITIDINE [Suspect]
     Active Substance: AZACITIDINE
     Indication: Acute myeloid leukaemia
     Dosage: 139 MILLIGRAM
     Route: 058
     Dates: start: 20200531, end: 20200601
  54. AZACITIDINE [Suspect]
     Active Substance: AZACITIDINE
     Indication: Acute myeloid leukaemia
     Dosage: 139 MILLIGRAM
     Route: 058
     Dates: start: 20200524, end: 20200528
  55. ASPIRIN [Concomitant]
     Active Substance: ASPIRIN
     Indication: Prophylaxis
     Dates: end: 20200403
  56. ASPIRIN [Concomitant]
     Active Substance: ASPIRIN
     Indication: Prophylaxis
     Dates: start: 20200406
  57. ISOSORBIDE MONONITRATE [Concomitant]
     Active Substance: ISOSORBIDE MONONITRATE
     Indication: Cardiac disorder
  58. ATENOLOL [Concomitant]
     Active Substance: ATENOLOL
     Indication: Hypertension
  59. SIMVASTATIN [Concomitant]
     Active Substance: SIMVASTATIN
     Indication: Hyperlipidaemia
     Dates: start: 20201221
  60. SIMVASTATIN [Concomitant]
     Active Substance: SIMVASTATIN
     Indication: Hyperlipidaemia
     Dates: start: 20201221
  61. ALLOPURINOL [Concomitant]
     Active Substance: ALLOPURINOL
     Indication: Prophylaxis
     Dates: start: 20200313
  62. FLUCONAZOLE [Concomitant]
     Active Substance: FLUCONAZOLE
     Indication: Antifungal prophylaxis
     Dates: start: 20200318, end: 20200403
  63. FLUCONAZOLE [Concomitant]
     Active Substance: FLUCONAZOLE
     Indication: Antifungal prophylaxis
     Dates: start: 20200406, end: 20200419
  64. CIPRODEX [Concomitant]
     Active Substance: CIPROFLOXACIN HYDROCHLORIDE\DEXAMETHASONE
     Indication: Infection prophylaxis
     Dates: start: 20200318, end: 20200403
  65. Avilac [Concomitant]
     Indication: Constipation
     Dates: start: 20200314, end: 20200314
  66. ZOFRAN [Concomitant]
     Active Substance: ONDANSETRON HYDROCHLORIDE
     Indication: Prophylaxis
     Dates: start: 20200719, end: 20200723
  67. ZOFRAN [Concomitant]
     Active Substance: ONDANSETRON HYDROCHLORIDE
     Indication: Prophylaxis
     Dates: start: 20200719, end: 20200723
  68. ZOFRAN [Concomitant]
     Active Substance: ONDANSETRON HYDROCHLORIDE
     Indication: Prophylaxis
     Dates: start: 20210829, end: 20210902
  69. ZOFRAN [Concomitant]
     Active Substance: ONDANSETRON HYDROCHLORIDE
     Indication: Prophylaxis
     Dates: start: 20210307, end: 20210311
  70. ZOFRAN [Concomitant]
     Active Substance: ONDANSETRON HYDROCHLORIDE
     Indication: Prophylaxis
     Dates: start: 20200601, end: 20200601
  71. ZOFRAN [Concomitant]
     Active Substance: ONDANSETRON HYDROCHLORIDE
     Indication: Prophylaxis
     Dates: start: 20201012, end: 20201015
  72. ZOFRAN [Concomitant]
     Active Substance: ONDANSETRON HYDROCHLORIDE
     Indication: Prophylaxis
     Dates: start: 20210718, end: 20210722
  73. ZOFRAN [Concomitant]
     Active Substance: ONDANSETRON HYDROCHLORIDE
     Indication: Prophylaxis
     Dosage: 3
     Dates: start: 20200524, end: 20200531
  74. ZOFRAN [Concomitant]
     Active Substance: ONDANSETRON HYDROCHLORIDE
     Indication: Prophylaxis
     Dates: start: 20201012, end: 20201015
  75. ZOFRAN [Concomitant]
     Active Substance: ONDANSETRON HYDROCHLORIDE
     Indication: Prophylaxis
     Dosage: LAST ADMIN DATE: MAY 2020
     Dates: start: 20200516
  76. ZOFRAN [Concomitant]
     Active Substance: ONDANSETRON HYDROCHLORIDE
     Indication: Prophylaxis
     Dates: start: 20210418, end: 20210422
  77. ZOFRAN [Concomitant]
     Active Substance: ONDANSETRON HYDROCHLORIDE
     Indication: Prophylaxis
     Dates: start: 20201213, end: 20201217
  78. ZOFRAN [Concomitant]
     Active Substance: ONDANSETRON HYDROCHLORIDE
     Indication: Prophylaxis
     Dates: start: 20201213, end: 20201217
  79. ZOFRAN [Concomitant]
     Active Substance: ONDANSETRON HYDROCHLORIDE
     Indication: Prophylaxis
     Dates: start: 20210418, end: 20210422
  80. ZOFRAN [Concomitant]
     Active Substance: ONDANSETRON HYDROCHLORIDE
     Indication: Prophylaxis
     Dates: start: 20210530, end: 20210603
  81. ZOFRAN [Concomitant]
     Active Substance: ONDANSETRON HYDROCHLORIDE
     Indication: Prophylaxis
     Dates: start: 20210718, end: 20210722
  82. ZOFRAN [Concomitant]
     Active Substance: ONDANSETRON HYDROCHLORIDE
     Indication: Prophylaxis
     Dates: start: 20200524, end: 20200531
  83. ZOFRAN [Concomitant]
     Active Substance: ONDANSETRON HYDROCHLORIDE
     Indication: Prophylaxis
     Dates: start: 20210530, end: 20210603
  84. ZOFRAN [Concomitant]
     Active Substance: ONDANSETRON HYDROCHLORIDE
     Indication: Prophylaxis
     Dates: start: 20211017, end: 20211020
  85. ZOFRAN [Concomitant]
     Active Substance: ONDANSETRON HYDROCHLORIDE
     Indication: Prophylaxis
     Dates: start: 20210124, end: 20210128
  86. ZOFRAN [Concomitant]
     Active Substance: ONDANSETRON HYDROCHLORIDE
     Indication: Prophylaxis
     Dates: start: 20210124, end: 20210128
  87. ZOFRAN [Concomitant]
     Active Substance: ONDANSETRON HYDROCHLORIDE
     Indication: Prophylaxis
     Dates: start: 20200601, end: 20200601
  88. ZOFRAN [Concomitant]
     Active Substance: ONDANSETRON HYDROCHLORIDE
     Indication: Prophylaxis
     Dates: start: 20210307, end: 20210311
  89. ZOFRAN [Concomitant]
     Active Substance: ONDANSETRON HYDROCHLORIDE
     Indication: Prophylaxis
     Dates: start: 20210829, end: 20210902
  90. ZOFRAN [Concomitant]
     Active Substance: ONDANSETRON HYDROCHLORIDE
     Indication: Prophylaxis
     Dates: start: 20200516
  91. ZOFRAN [Concomitant]
     Active Substance: ONDANSETRON HYDROCHLORIDE
     Indication: Prophylaxis
     Dates: start: 20211017, end: 20211020
  92. COVID-19 vaccine [Concomitant]
     Indication: COVID-19 prophylaxis
     Dates: start: 20210116, end: 20210116
  93. COVID-19 vaccine [Concomitant]
     Indication: COVID-19 prophylaxis
     Dates: start: 20201226, end: 20201226
  94. COVID-19 vaccine [Concomitant]
     Indication: COVID-19 prophylaxis
     Dates: start: 20201226, end: 20201226
  95. COVID-19 vaccine [Concomitant]
     Indication: COVID-19 prophylaxis
     Dates: start: 20201226, end: 20201226
  96. COVID-19 vaccine [Concomitant]
     Indication: COVID-19 prophylaxis
     Dates: start: 20210116, end: 20210116
  97. COVID-19 vaccine [Concomitant]
     Indication: COVID-19 prophylaxis
     Dates: start: 20210116, end: 20210116
  98. NEUPOGEN [Concomitant]
     Active Substance: FILGRASTIM
     Indication: Blood disorder
     Dates: start: 20201109, end: 20211109
  99. NEUPOGEN [Concomitant]
     Active Substance: FILGRASTIM
     Indication: Blood disorder
     Dates: start: 20201109, end: 20211109
  100. NEUPOGEN [Concomitant]
     Active Substance: FILGRASTIM
     Indication: Blood disorder
     Dates: start: 20201109, end: 20211109
  101. NEUPOGEN [Concomitant]
     Active Substance: FILGRASTIM
     Indication: Blood disorder
     Dates: start: 20200413, end: 20200418
  102. Lercapress [Concomitant]
     Indication: Hypertension
     Dates: start: 20230227
  103. Lercapress [Concomitant]
     Indication: Hypertension
     Dates: start: 20230227
  104. ASPIRIN [Concomitant]
     Active Substance: ASPIRIN
     Indication: Product use in unapproved indication
     Dates: start: 20220410
  105. ASPIRIN [Concomitant]
     Active Substance: ASPIRIN
     Indication: Product use in unapproved indication
     Dates: start: 20220410

REACTIONS (26)
  - Phlebitis [Not Recovered/Not Resolved]
  - Dizziness [Recovered/Resolved]
  - Myocardial ischaemia [Recovered/Resolved]
  - Neutropenia [Recovered/Resolved]
  - Hepatic enzyme increased [Recovered/Resolved]
  - Infusion site reaction [Recovering/Resolving]
  - Back pain [Recovered/Resolved]
  - Hypophosphataemia [Recovered/Resolved]
  - Nausea [Recovered/Resolved]
  - Neutrophil count decreased [Recovered/Resolved]
  - Neutrophil count decreased [Recovered/Resolved]
  - Platelet count decreased [Not Recovered/Not Resolved]
  - Thrombocytopenia [Recovered/Resolved]
  - Cytopenia [Recovered/Resolved]
  - Neutropenia [Recovered/Resolved]
  - Thrombocytopenia [Recovered/Resolved]
  - Thrombocytopenia [Recovered/Resolved]
  - Thrombocytopenia [Recovered/Resolved]
  - Neutropenia [Recovered/Resolved]
  - Thrombocytopenia [Recovered/Resolved]
  - Neutropenia [Recovered/Resolved]
  - Cytopenia [Recovered/Resolved]
  - Asthenia [Recovered/Resolved]
  - Thrombocytopenia [Recovered/Resolved]
  - Chest pain [Recovered/Resolved]
  - Fatigue [Recovered/Resolved]

NARRATIVE: CASE EVENT DATE: 20200315
